FAERS Safety Report 22189436 (Version 2)
Quarter: 2023Q2

REPORT INFORMATION
  Report Type: Other
  Country: DE (occurrence: DE)
  Receive Date: 20230410
  Receipt Date: 20230508
  Transmission Date: 20230721
  Serious: Yes (Other)
  Sender: FDA-Public Use
  Company Number: DE-CELLTRION INC.-2023DE007004

PATIENT

DRUGS (16)
  1. RITUXIMAB [Suspect]
     Active Substance: RITUXIMAB
     Indication: Diffuse large B-cell lymphoma
     Dosage: THE FIRST ADMINISTRATION WAS WITH RITUXIMAB BIOSIMILAR, AND FOR THE SUBSEQUENT ADMINISTRATIONS MABTH
     Dates: start: 20220201
  2. RITUXIMAB [Suspect]
     Active Substance: RITUXIMAB
     Dosage: THE FIRST ADMINISTRATION WAS WITH RITUXIMAB BIOSIMILAR, AND FOR THE SUBSEQUENT ADMINISTRATIONS MABTH
     Dates: start: 20220501
  3. GEMCITABINE [Suspect]
     Active Substance: GEMCITABINE
     Indication: Diffuse large B-cell lymphoma
     Dosage: IN FIFTH LINE THE PATIENT WAS TREATED WITH GEMOX (GEMCITABINE OXALIPLATIN), RESPONSE: NO RESPONSE/ST
     Dates: start: 20230201, end: 20230308
  4. VINCRISTINE [Suspect]
     Active Substance: VINCRISTINE
     Indication: Diffuse large B-cell lymphoma
     Dosage: UNK
     Dates: start: 20220201, end: 20220501
  5. PREDNISONE [Suspect]
     Active Substance: PREDNISONE
     Indication: Diffuse large B-cell lymphoma
     Dosage: UNK
     Dates: start: 20220201, end: 20220501
  6. POLIVY [Suspect]
     Active Substance: POLATUZUMAB VEDOTIN-PIIQ
     Indication: Diffuse large B-cell lymphoma
     Dosage: UNK
     Dates: start: 20220501, end: 20220601
  7. DOXORUBICIN HYDROCHLORIDE [Suspect]
     Active Substance: DOXORUBICIN HYDROCHLORIDE
     Indication: Diffuse large B-cell lymphoma
     Dosage: UNK
     Dates: start: 20220201, end: 20220501
  8. BENDAMUSTINE [Suspect]
     Active Substance: BENDAMUSTINE
     Indication: Diffuse large B-cell lymphoma
     Dosage: UNK
     Dates: start: 20220501, end: 20220601
  9. MABTHERA [Suspect]
     Active Substance: RITUXIMAB
     Indication: Diffuse large B-cell lymphoma
     Dosage: THE FIRST ADMINISTRATION WAS WITH RITUXIMAB BIOSIMILAR, AND FOR THE SUBSEQUENT ADMINISTRATIONS MABTH
     Route: 058
     Dates: start: 20220501
  10. MABTHERA [Suspect]
     Active Substance: RITUXIMAB
     Dosage: THE FIRST ADMINISTRATION WAS WITH RITUXIMAB BIOSIMILAR, AND FOR THE SUBSEQUENT ADMINISTRATIONS MABTH
     Route: 058
     Dates: start: 20220601
  11. MABTHERA [Suspect]
     Active Substance: RITUXIMAB
     Dosage: UNK
  12. MABTHERA [Suspect]
     Active Substance: RITUXIMAB
     Dosage: UNK
  13. LENALIDOMIDE [Suspect]
     Active Substance: LENALIDOMIDE
     Indication: Diffuse large B-cell lymphoma
     Dosage: 1N FOURTH LINE THE PATIENT WAS TREATED WITH TAFASIATAMAB AND LENALIDOMIDE RESPONSE: NO RESPONSE/STAB
     Dates: start: 20230101, end: 20230201
  14. TAFASITAMAB-CXIX [Suspect]
     Active Substance: TAFASITAMAB-CXIX
     Indication: Diffuse large B-cell lymphoma
     Dosage: 1N FOURTH LINE THE PATIENT WAS TREATED WITH TAFASIATAMAB AND LENALIDOMIDE RESPONSE: NO RESPONSE/STAB
     Dates: start: 20230101, end: 20230201
  15. CYCLOPHOSPHAMIDE [Suspect]
     Active Substance: CYCLOPHOSPHAMIDE
     Indication: Diffuse large B-cell lymphoma
     Dosage: UNK
     Dates: start: 20220201, end: 20220501
  16. OXALIPLATIN [Suspect]
     Active Substance: OXALIPLATIN
     Indication: Diffuse large B-cell lymphoma
     Dosage: IN FIFTH LINE THE PATIENT WAS TREATED WITH GEMOX (GEMCITABINE OXALIPLATIN), RESPONSE: NO RESPONSE/ST
     Dates: start: 20230201, end: 20230308

REACTIONS (2)
  - Lymphoma [Unknown]
  - Disease progression [Unknown]
